FAERS Safety Report 18977863 (Version 3)
Quarter: 2021Q2

REPORT INFORMATION
  Report Type: Report from Study
  Country: US (occurrence: US)
  Receive Date: 20210306
  Receipt Date: 20210507
  Transmission Date: 20210717
  Serious: Yes (Other)
  Sender: FDA-Public Use
  Company Number: NVSC2021US045446

PATIENT
  Age: 51 Year
  Sex: Female

DRUGS (1)
  1. COSENTYX [Suspect]
     Active Substance: SECUKINUMAB
     Indication: PSORIATIC ARTHROPATHY
     Dosage: 300 MG, QW FOR 5W AND THEN Q4W
     Route: 058
     Dates: start: 20210128

REACTIONS (7)
  - Fatigue [Unknown]
  - Limb discomfort [Unknown]
  - Burning sensation [Unknown]
  - Influenza like illness [Unknown]
  - Sensitivity to weather change [Recovered/Resolved]
  - Psoriatic arthropathy [Unknown]
  - Grip strength decreased [Unknown]

NARRATIVE: CASE EVENT DATE: 20210216
